FAERS Safety Report 11158900 (Version 1)
Quarter: 2015Q2

REPORT INFORMATION
  Report Type: Spontaneous
  Country: US (occurrence: None)
  Receive Date: 20150521
  Receipt Date: 20150521
  Transmission Date: 20150821
  Serious: Yes (Other)
  Sender: FDA-Public Use
  Company Number: VISP-PR-1412S-0533

PATIENT

DRUGS (2)
  1. VISIPAQUE [Suspect]
     Active Substance: IODIXANOL
     Indication: PRODUCT USED FOR UNKNOWN INDICATION
     Dosage: NR, SINGLE DOSE,
  2. VISIPAQUE [Suspect]
     Active Substance: IODIXANOL
     Indication: DIAGNOSTIC PROCEDURE
     Dosage: NR, SINGLE DOSE,

REACTIONS (1)
  - Anaphylactic reaction [None]
